FAERS Safety Report 12640713 (Version 2)
Quarter: 2016Q3

REPORT INFORMATION
  Report Type: Spontaneous
  Country: HU (occurrence: HU)
  Receive Date: 20160810
  Receipt Date: 20160811
  Transmission Date: 20161109
  Serious: Yes (Life-Threatening, Hospitalization, Disabling)
  Sender: FDA-Public Use
  Company Number: HU-B.I. PHARMACEUTICALS,INC./RIDGEFIELD-2016-BI-52124HU

PATIENT
  Age: 70 Year
  Sex: Male
  Weight: 82 kg

DRUGS (5)
  1. ROSUVASTATIN. [Concomitant]
     Active Substance: ROSUVASTATIN
     Indication: PRODUCT USED FOR UNKNOWN INDICATION
     Dosage: 10 MG
     Route: 065
  2. PRADAXA [Suspect]
     Active Substance: DABIGATRAN ETEXILATE MESYLATE
     Indication: ATRIAL FIBRILLATION
     Dosage: 300 MG
     Route: 048
     Dates: start: 20140707, end: 20160805
  3. PIRACETAM [Concomitant]
     Active Substance: PIRACETAM
     Indication: PRODUCT USED FOR UNKNOWN INDICATION
     Dosage: 2400 MG
     Route: 065
  4. FAMOTIDIN [Concomitant]
     Indication: PRODUCT USED FOR UNKNOWN INDICATION
     Dosage: 40 MG
     Route: 065
  5. PRADAXA [Suspect]
     Active Substance: DABIGATRAN ETEXILATE MESYLATE
     Indication: VENOUS THROMBOSIS

REACTIONS (3)
  - Cerebral haemorrhage [Recovered/Resolved]
  - Aphasia [Unknown]
  - Hemiparesis [Recovered/Resolved]

NARRATIVE: CASE EVENT DATE: 20160805
